FAERS Safety Report 7388841-2 (Version None)
Quarter: 2011Q2

REPORT INFORMATION
  Report Type: 
  Country: None (occurrence: None)
  Receive Date: 20110401
  Receipt Date: 20110328
  Transmission Date: 20111010
  Serious: Yes (Death)
  Sender: FDA-Public Use
  Company Number: AU-ABBOTT-11P-008-0714784-00

PATIENT

DRUGS (1)
  1. LUCRIN DEPOT [Suspect]
     Indication: PRODUCT USED FOR UNKNOWN INDICATION
     Dosage: 4 MONTHLY
     Dates: start: 20100901

REACTIONS (2)
  - DEATH [None]
  - ILL-DEFINED DISORDER [None]
